FAERS Safety Report 8941017 (Version 1)
Quarter: 2012Q4

REPORT INFORMATION
  Report Type: 
  Country: ES (occurrence: ES)
  Receive Date: 20121203
  Receipt Date: 20121203
  Transmission Date: 20130627
  Serious: Yes (Other)
  Sender: FDA-Public Use
  Company Number: ES-ROCHE-1161221

PATIENT
  Age: 60 Year
  Sex: Male

DRUGS (6)
  1. RITUXIMAB [Suspect]
     Indication: CHRONIC LYMPHOCYTIC LEUKAEMIA
     Dosage: on day 1 and 375mg/m2 on the first cycle
     Route: 065
  2. RITUXIMAB [Suspect]
     Dosage: 1 cycle
     Route: 065
  3. MITOXANTRONE [Suspect]
     Indication: CHRONIC LYMPHOCYTIC LEUKAEMIA
     Dosage: On day 1
     Route: 042
  4. FLUDARABINE [Suspect]
     Indication: CHRONIC LYMPHOCYTIC LEUKAEMIA
     Dosage: 5 days
     Route: 048
  5. FLUDARABINE [Suspect]
     Dosage: on days 1 to 3
     Route: 042
  6. CYCLOPHOSPHAMIDE [Suspect]
     Indication: CHRONIC LYMPHOCYTIC LEUKAEMIA
     Dosage: on days 1 to 3.
     Route: 042

REACTIONS (1)
  - Prostate cancer [Unknown]
